FAERS Safety Report 16077142 (Version 2)
Quarter: 2019Q1

REPORT INFORMATION
  Report Type: Spontaneous
  Country: US (occurrence: US)
  Receive Date: 20190315
  Receipt Date: 20190329
  Transmission Date: 20190418
  Serious: Yes (Other)
  Sender: FDA-Public Use
  Company Number: US-AMGEN-USASP2019037838

PATIENT
  Age: 67 Year
  Sex: Female
  Weight: 95.25 kg

DRUGS (2)
  1. IBRANCE [Concomitant]
     Active Substance: PALBOCICLIB
     Indication: BREAST CANCER METASTATIC
     Dosage: 125 MILLIGRAM, QD FOR 21 DAYS ON AND 7 DAYS OFF
     Route: 048
     Dates: start: 201802
  2. ARANESP [Suspect]
     Active Substance: DARBEPOETIN ALFA
     Indication: HAEMOGLOBIN DECREASED
     Dosage: UNK
     Route: 065
     Dates: start: 2018

REACTIONS (5)
  - Intra-abdominal haemorrhage [Unknown]
  - Haemoglobin decreased [Unknown]
  - Weight increased [Unknown]
  - Abdominal discomfort [Unknown]
  - Urinary tract infection [Recovered/Resolved]

NARRATIVE: CASE EVENT DATE: 201812
